FAERS Safety Report 24457344 (Version 2)
Quarter: 2025Q4

REPORT INFORMATION
  Report Type: Spontaneous
  Country: US (occurrence: US)
  Receive Date: 20241018
  Receipt Date: 20251229
  Transmission Date: 20260118
  Serious: No
  Sender: PHARMING GROUP
  Company Number: US-PHARMING-PHAUS2024000899

PATIENT

DRUGS (2)
  1. RUCONEST [Suspect]
     Active Substance: CONESTAT ALFA
     Indication: Hereditary angioedema
     Dosage: 1900 IU, PRN
     Route: 042
     Dates: start: 202406
  2. RUCONEST [Suspect]
     Active Substance: CONESTAT ALFA
     Dosage: 2300 IU, PRN MAX TWO PER DAY
     Route: 042
     Dates: start: 202406

REACTIONS (2)
  - Weight fluctuation [Unknown]
  - Product use complaint [Unknown]

NARRATIVE: CASE EVENT DATE: 20241004
